FAERS Safety Report 22623129 (Version 3)
Quarter: 2024Q3

REPORT INFORMATION
  Report Type: Spontaneous
  Country: CA (occurrence: CA)
  Receive Date: 20230621
  Receipt Date: 20240701
  Transmission Date: 20241017
  Serious: Yes (Other)
  Sender: INTERCEPT PHARMACEUTICALS
  Company Number: CA-ADVANZ PHARMA-202304003391

PATIENT
  Age: 79 Year
  Sex: Female

DRUGS (2)
  1. OCALIVA [Suspect]
     Active Substance: OBETICHOLIC ACID
     Indication: Primary biliary cholangitis
     Dosage: 5 MG, QD (OCALIVA)
     Route: 048
     Dates: start: 20211218
  2. URSODIOL [Concomitant]
     Active Substance: URSODIOL
     Dosage: UNK, BID (250MG AM/ 500MG PM)
     Dates: start: 20060106

REACTIONS (3)
  - Rectal haemorrhage [Unknown]
  - Hepatic pain [Not Recovered/Not Resolved]
  - Hypoaesthesia [Unknown]
